FAERS Safety Report 6188538-0 (Version None)
Quarter: 2009Q2

REPORT INFORMATION
  Report Type: 
  Country: None (occurrence: None)
  Receive Date: 20090513
  Receipt Date: 20090508
  Transmission Date: 20091009
  Serious: Yes (Disabling)
  Sender: FDA-Public Use
  Company Number: GB-AMGEN-US335901

PATIENT
  Sex: Female

DRUGS (1)
  1. ENBREL [Suspect]
     Indication: DRUG USE FOR UNKNOWN INDICATION
     Route: 065
     Dates: end: 20090205

REACTIONS (11)
  - ABASIA [None]
  - ARTHRITIS [None]
  - BLISTER [None]
  - CONDITION AGGRAVATED [None]
  - INFECTION [None]
  - JOINT SWELLING [None]
  - NASOPHARYNGITIS [None]
  - OEDEMA PERIPHERAL [None]
  - PRURITUS GENERALISED [None]
  - RASH GENERALISED [None]
  - SCAB [None]
